FAERS Safety Report 23082371 (Version 2)
Quarter: 2023Q4

REPORT INFORMATION
  Report Type: Report from Study
  Country: GB (occurrence: GB)
  Receive Date: 20231019
  Receipt Date: 20231025
  Transmission Date: 20240110
  Serious: Yes (Death, Other)
  Sender: FDA-Public Use
  Company Number: GB-CELLTRION INC.-2023GB020246

PATIENT

DRUGS (17)
  1. BEVACIZUMAB [Suspect]
     Active Substance: BEVACIZUMAB
     Indication: Hepatocellular carcinoma
     Dosage: 900 MILLIGRAM
     Route: 065
     Dates: start: 20211103
  2. ATEZOLIZUMAB [Suspect]
     Active Substance: ATEZOLIZUMAB
     Indication: Hepatocellular carcinoma
     Dosage: 1200 MILLIGRAM
     Route: 042
     Dates: start: 20211103
  3. AMITRIPTYLINE [Concomitant]
     Active Substance: AMITRIPTYLINE
     Dosage: AMITRIPTYLINE 25MG; EVERY 0.33 DAY
     Dates: start: 2018
  4. AMITRIPTYLINE [Concomitant]
     Active Substance: AMITRIPTYLINE
     Dosage: AMITRIPTYLINE 25MG; EVERY 0.33 DAY
     Dates: start: 2018
  5. ATENOLOL [Concomitant]
     Active Substance: ATENOLOL
     Dosage: ATENOLOL 50 MG;
     Dates: start: 2016
  6. CANDESARTAN [Concomitant]
     Active Substance: CANDESARTAN
     Dosage: EVERY 1 DAY, CANDESARTAN 8MG, NEXT DOSAGE DATE: 12/MAY/2022
     Dates: start: 20211115, end: 20220401
  7. AMOXICILLIN\CLAVULANATE POTASSIUM [Concomitant]
     Active Substance: AMOXICILLIN\CLAVULANATE POTASSIUM
     Dosage: 1.2 G, EVERY 0.33 DAY
     Dates: start: 20220123, end: 20220126
  8. GABAPENTIN [Concomitant]
     Active Substance: GABAPENTIN
     Dosage: GABAPENTIN 100MG; EVERY 0.33 DAY
     Dates: start: 20210601
  9. LANSOPRAZOLE [Concomitant]
     Active Substance: LANSOPRAZOLE
     Indication: Prophylaxis
     Dosage: 30 MILLIGRAM, EVERY 1 DAY
     Dates: start: 20211025
  10. LANSOPRAZOLE [Concomitant]
     Active Substance: LANSOPRAZOLE
     Dosage: LANSOPRAZOLE 30MG; EVERY 1 DAY
     Dates: start: 20211025
  11. LERCANIDIPINE [Concomitant]
     Active Substance: LERCANIDIPINE
     Dosage: LERCANDIPINE HYDROCHLORIDE 10MG; EVERY 1 DAY
     Dates: start: 2017
  12. LIDOCAINE [Concomitant]
     Active Substance: LIDOCAINE
     Dosage: LIDOCAINE HYDROCHLORIDE 10 MG NASAL SPARAY; EVERY 1 DAY
     Route: 045
     Dates: start: 2020
  13. OXYCODONE [Concomitant]
     Active Substance: OXYCODONE
     Dosage: OXYCODONE 5MG/ML; EVERY 0.5 DAY
     Dates: start: 20201101
  14. ACETAMINOPHEN [Concomitant]
     Active Substance: ACETAMINOPHEN
     Dosage: PARACETAMOL 500 MG; ;
     Dates: start: 20210727
  15. RALTEGRAVIR [Concomitant]
     Active Substance: RALTEGRAVIR
     Dosage: RALTEGRAVIR 400MG; EVERY 0.5 DAY
     Dates: start: 20170620
  16. TAMSULOSIN [Concomitant]
     Active Substance: TAMSULOSIN
     Dosage: TAMSULOSIN 400 MCG; EVERY 1 DAY
     Dates: start: 20211014
  17. TRUVADA [Concomitant]
     Active Substance: EMTRICITABINE\TENOFOVIR DISOPROXIL FUMARATE
     Dosage: TRUVADA 200MG.250MG; EVERY 1 DAY
     Dates: start: 20170620

REACTIONS (4)
  - Death [Fatal]
  - Proteinuria [Not Recovered/Not Resolved]
  - Proteinuria [Recovered/Resolved]
  - Intentional product use issue [Unknown]

NARRATIVE: CASE EVENT DATE: 20211215
